FAERS Safety Report 5816615-X (Version None)
Quarter: 2008Q3

REPORT INFORMATION
  Report Type: 
  Country: None (occurrence: None)
  Receive Date: 20080721
  Receipt Date: 20080710
  Transmission Date: 20090109
  Serious: Yes (Hospitalization)
  Sender: FDA-Public Use
  Company Number: US-SANOFI-SYNTHELABO-A03200802754

PATIENT
  Sex: Female

DRUGS (1)
  1. AMBIEN [Suspect]
     Indication: INSOMNIA
     Dosage: 5 MG ONCE OR TWICE A WEEK
     Route: 048
     Dates: start: 20060101

REACTIONS (4)
  - AMNESIA [None]
  - BACK INJURY [None]
  - FACE INJURY [None]
  - FALL [None]
